FAERS Safety Report 14196757 (Version 5)
Quarter: 2021Q3

REPORT INFORMATION
  Report Type: Spontaneous
  Country: JP (occurrence: JP)
  Receive Date: 20171116
  Receipt Date: 20210826
  Transmission Date: 20211014
  Serious: Yes (Life-Threatening, Hospitalization, Other)
  Sender: FDA-Public Use
  Company Number: JP-GLAXOSMITHKLINE-JP2017JPN173509

PATIENT
  Age: 77 Year
  Sex: Male
  Weight: 60.5 kg

DRUGS (7)
  1. VALTREX [Suspect]
     Active Substance: VALACYCLOVIR HYDROCHLORIDE
     Indication: HERPES ZOSTER
     Dosage: 1000 MG, TID
     Route: 048
     Dates: start: 20171107, end: 20171108
  2. BAYASPIRIN [Concomitant]
     Active Substance: ASPIRIN
     Dosage: 100 MG
  3. MAINTATE [Concomitant]
     Active Substance: BISOPROLOL FUMARATE
     Dosage: 1.25 MG
  4. LOXOPROFEN NA [Suspect]
     Active Substance: LOXOPROFEN SODIUM
     Dosage: 120 MG
     Dates: start: 20171107
  5. LIVALO [Concomitant]
     Active Substance: PITAVASTATIN CALCIUM
     Dosage: 1 MG
  6. TEPRENONE [Concomitant]
     Active Substance: TEPRENONE
     Dosage: 100 MG
  7. EPADEL [Concomitant]
     Active Substance: ICOSAPENT
     Dosage: 900 MG

REACTIONS (17)
  - Acute kidney injury [Recovered/Resolved]
  - Delirium [Recovering/Resolving]
  - Altered state of consciousness [Recovered/Resolved]
  - Renal impairment [Recovered/Resolved]
  - Diplopia [Unknown]
  - Communication disorder [Recovering/Resolving]
  - Disorientation [Recovering/Resolving]
  - Restlessness [Unknown]
  - Treatment noncompliance [Unknown]
  - Aggression [Unknown]
  - Disorganised speech [Unknown]
  - Hallucination, visual [Recovering/Resolving]
  - Vertigo [Recovered/Resolved]
  - Nervous system disorder [Unknown]
  - Contusion [Unknown]
  - Feeding disorder [Unknown]
  - Toxic encephalopathy [Recovering/Resolving]

NARRATIVE: CASE EVENT DATE: 20171108
